FAERS Safety Report 7616625 (Version 2)
Quarter: 2013Q3

REPORT INFORMATION
  Report Type: Report from Study
  Country: UG (occurrence: UG)
  Receive Date: 20101004
  Receipt Date: 20130802
  Transmission Date: 20140515
  Serious: Yes (Death)
  Sender: FDA-Public Use
  Company Number: UG-ABBOTT-10P-165-0674666-00

PATIENT
  Age: 33 Year
  Sex: Female

DRUGS (3)
  1. ALUVIA TABLETS [Suspect]
     Indication: PRODUCT USED FOR UNKNOWN INDICATION
     Dates: start: 20100511, end: 20100925
  2. RALTEGRAVIR [Concomitant]
     Indication: PRODUCT USED FOR UNKNOWN INDICATION
     Dates: start: 20100511, end: 20100925
  3. CO-TRIMOXAZOLE [Concomitant]
     Indication: PRODUCT USED FOR UNKNOWN INDICATION
     Dates: start: 20060425, end: 20100925

REACTIONS (18)
  - Diarrhoea [Fatal]
  - Pruritus [Fatal]
  - Rash papular [Fatal]
  - Dysphagia [Fatal]
  - Candida infection [Fatal]
  - Oral herpes [Fatal]
  - Diarrhoea [Fatal]
  - Odynophagia [Fatal]
  - Diarrhoea [Fatal]
  - Abdominal pain upper [Fatal]
  - Dehydration [Fatal]
  - Palpitations [Fatal]
  - Vomiting [Fatal]
  - Bedridden [Fatal]
  - Gastroenteritis [Fatal]
  - Arrhythmia [Fatal]
  - Arrhythmia [Fatal]
  - Gastrointestinal haemorrhage [Fatal]
